FAERS Safety Report 5355489-0 (Version None)
Quarter: 2007Q2

REPORT INFORMATION
  Report Type: 
  Country: None (occurrence: None)
  Receive Date: 20070530
  Receipt Date: 20061206
  Transmission Date: 20071010
  Serious: Yes (Hospitalization)
  Sender: FDA-Public Use
  Company Number: US200609001907

PATIENT
  Age: 63 Year
  Sex: Female
  Weight: 133.8 kg

DRUGS (1)
  1. ZYPREXA [Suspect]

REACTIONS (3)
  - CARDIAC FAILURE [None]
  - DIABETES MELLITUS [None]
  - METABOLIC DISORDER [None]
